FAERS Safety Report 19094752 (Version 1)
Quarter: 2021Q2

REPORT INFORMATION
  Report Type: Other
  Country: FR (occurrence: FR)
  Receive Date: 20210405
  Receipt Date: 20210405
  Transmission Date: 20210717
  Serious: Yes (Life-Threatening)
  Sender: FDA-Public Use
  Company Number: FR-VALIDUS PHARMACEUTICALS LLC-FR-2021VAL000969

PATIENT
  Age: 33 Year
  Sex: Female
  Weight: 50 kg

DRUGS (8)
  1. BLEU PATENTE V [Suspect]
     Active Substance: PATENT BLUE V
     Indication: DIAGNOSTIC PROCEDURE
  2. NORADRENALINE                      /00127501/ [Concomitant]
     Active Substance: NOREPINEPHRINE
     Indication: PRODUCT USED FOR UNKNOWN INDICATION
     Dosage: UNK
  3. ETOMIDATE LIPURO [Suspect]
     Active Substance: ETOMIDATE
     Indication: INDUCTION OF ANAESTHESIA
     Dosage: 24 MG, TOTAL
     Route: 042
     Dates: start: 20190323, end: 20190323
  4. HUMAN FIBRINOGEN [Suspect]
     Active Substance: FIBRINOGEN HUMAN
     Indication: DISSEMINATED INTRAVASCULAR COAGULATION
     Dosage: 3 G, QD
     Route: 042
     Dates: start: 20190323, end: 20190323
  5. BLEU PATENTE V [Suspect]
     Active Substance: PATENT BLUE V
     Indication: FIDUCIAL MARKER PLACEMENT
     Dosage: 1 DF, QD
     Route: 042
     Dates: start: 20190323, end: 20190323
  6. FUROSEMIDE. [Suspect]
     Active Substance: FUROSEMIDE
     Indication: FIDUCIAL MARKER PLACEMENT
     Dosage: 20 MG, TOTAL
     Route: 042
     Dates: start: 20190323, end: 20190323
  7. SUFENTANIL [Suspect]
     Active Substance: SUFENTANIL
     Indication: INDUCTION OF ANAESTHESIA
     Dosage: 50 ?G, TOTAL
     Route: 042
     Dates: start: 20190323, end: 20190323
  8. CEFAZOLIN [Suspect]
     Active Substance: CEFAZOLIN
     Indication: ANTIBIOTIC PROPHYLAXIS
     Dosage: 1 G, TOTAL
     Route: 042
     Dates: start: 20190323, end: 20190323

REACTIONS (1)
  - Anaphylactic shock [Recovered/Resolved]

NARRATIVE: CASE EVENT DATE: 20190323
